FAERS Safety Report 23917500 (Version 2)
Quarter: 2024Q2

REPORT INFORMATION
  Report Type: Report from Study
  Country: CA (occurrence: CA)
  Receive Date: 20240529
  Receipt Date: 20240623
  Transmission Date: 20240716
  Serious: Yes (Death)
  Sender: FDA-Public Use
  Company Number: CA-ABBVIE-5777970

PATIENT
  Age: 72 Year
  Sex: Male

DRUGS (6)
  1. BOTOX [Suspect]
     Active Substance: ONABOTULINUMTOXINA
     Indication: Muscle spasticity
     Dosage: 50 UNITS, STRENGHT-400 UNIT
     Route: 030
     Dates: start: 20221120
  2. BOTOX [Suspect]
     Active Substance: ONABOTULINUMTOXINA
     Indication: Muscle spasticity
     Dosage: 50 UNITS
     Route: 030
     Dates: start: 20221120
  3. BOTOX [Suspect]
     Active Substance: ONABOTULINUMTOXINA
     Indication: Muscle spasticity
     Dosage: 100 UNITS
     Route: 030
     Dates: start: 20221120
  4. BOTOX [Suspect]
     Active Substance: ONABOTULINUMTOXINA
     Indication: Muscle spasticity
     Dosage: 100 UNITS
     Route: 030
     Dates: start: 20221120
  5. BOTOX [Suspect]
     Active Substance: ONABOTULINUMTOXINA
     Indication: Muscle spasticity
     Dosage: 50 UNITS
     Route: 030
     Dates: start: 20221120
  6. BOTOX [Suspect]
     Active Substance: ONABOTULINUMTOXINA
     Indication: Muscle spasticity
     Dosage: 50 UNITS
     Route: 030
     Dates: start: 20221120

REACTIONS (7)
  - Death [Fatal]
  - Malaise [Unknown]
  - Arthralgia [Unknown]
  - Hypoaesthesia [Unknown]
  - Fall [Unknown]
  - Lower limb fracture [Unknown]
  - Joint contracture [Unknown]

NARRATIVE: CASE EVENT DATE: 20230301
